FAERS Safety Report 6168736-2 (Version None)
Quarter: 2009Q2

REPORT INFORMATION
  Report Type: 
  Country: None (occurrence: None)
  Receive Date: 20090427
  Receipt Date: 20090226
  Transmission Date: 20091009
  Serious: Yes (Other)
  Sender: FDA-Public Use
  Company Number: GB-MERCK-0901GBR00056

PATIENT
  Age: 56 Year
  Sex: Female
  Weight: 55 kg

DRUGS (2)
  1. APREPITANT [Suspect]
     Indication: PROPHYLAXIS OF NAUSEA AND VOMITING
     Route: 048
     Dates: start: 20081120, end: 20081120
  2. CISPLATIN [Concomitant]
     Indication: RADIOTHERAPY
     Route: 065
     Dates: start: 20081103, end: 20081120

REACTIONS (1)
  - ANAPHYLACTIC SHOCK [None]
